FAERS Safety Report 12521433 (Version 1)
Quarter: 2016Q3

REPORT INFORMATION
  Report Type: Spontaneous
  Country: CH (occurrence: CH)
  Receive Date: 20160701
  Receipt Date: 20160701
  Transmission Date: 20161109
  Serious: Yes (Hospitalization)
  Sender: FDA-Public Use
  Company Number: CH-JNJFOC-20160625060

PATIENT
  Age: 29 Year
  Sex: Female

DRUGS (14)
  1. SEROQUEL [Concomitant]
     Active Substance: QUETIAPINE FUMARATE
     Route: 065
     Dates: start: 20160520
  2. TEMESTA [Concomitant]
     Active Substance: LORAZEPAM
     Dosage: BID MAX
     Route: 048
  3. DEPAKINE [Concomitant]
     Active Substance: VALPROATE SODIUM
     Indication: AFFECTIVE DISORDER
     Dosage: LONG TERM
     Route: 048
     Dates: start: 2007, end: 20160601
  4. BETASERC [Concomitant]
     Active Substance: BETAHISTINE
     Dosage: MORNING AND EVENING
     Route: 048
     Dates: start: 20160601
  5. XEPLION [Suspect]
     Active Substance: PALIPERIDONE PALMITATE
     Indication: PRODUCT USED FOR UNKNOWN INDICATION
     Dosage: LONG TERM TREATMENT
     Route: 030
     Dates: end: 20160510
  6. RISPERDAL CONSTA [Suspect]
     Active Substance: RISPERIDONE
     Indication: PRODUCT USED FOR UNKNOWN INDICATION
     Route: 030
     Dates: start: 20160531, end: 20160531
  7. BUSCOPALAMIN [Concomitant]
     Dosage: THRICE DAILY MAX
     Route: 048
  8. SEROQUEL [Concomitant]
     Active Substance: QUETIAPINE FUMARATE
     Route: 065
     Dates: end: 20160505
  9. MOVICOL [Concomitant]
     Active Substance: POLYETHYLENE GLYCOL 3350\POTASSIUM CHLORIDE\SODIUM BICARBONATE\SODIUM CHLORIDE
     Dosage: 1 DOSE DAILY MAX IN THE MORNING
     Route: 048
  10. DEPAKINE [Concomitant]
     Active Substance: VALPROATE SODIUM
     Indication: AFFECTIVE DISORDER
     Dosage: MORNING AND EVENING
     Route: 048
     Dates: start: 20160601
  11. RIVOTRIL [Concomitant]
     Active Substance: CLONAZEPAM
     Dosage: MORNING AND EVENING
     Route: 048
     Dates: start: 20160526
  12. DAFALGAN [Concomitant]
     Active Substance: ACETAMINOPHEN
     Dosage: MAX THRICE DAILY
     Route: 048
  13. RISPERDAL [Suspect]
     Active Substance: RISPERIDONE
     Indication: PRODUCT USED FOR UNKNOWN INDICATION
     Dosage: AT 8:00 AND 18:00
     Route: 048
     Dates: start: 20160526, end: 20160608
  14. SEROQUEL [Concomitant]
     Active Substance: QUETIAPINE FUMARATE
     Route: 065
     Dates: start: 20160505, end: 20160520

REACTIONS (2)
  - Epilepsy [Unknown]
  - Eye movement disorder [Recovered/Resolved]

NARRATIVE: CASE EVENT DATE: 20160602
